FAERS Safety Report 18164156 (Version 1)
Quarter: 2020Q3

REPORT INFORMATION
  Report Type: Spontaneous
  Country: IT (occurrence: IT)
  Receive Date: 20200818
  Receipt Date: 20200818
  Transmission Date: 20201103
  Serious: Yes (Hospitalization)
  Sender: FDA-Public Use
  Company Number: IT-MYLANLABS-2020M1070923

PATIENT
  Age: 39 Year
  Sex: Female

DRUGS (1)
  1. ELETRIPTAN. [Suspect]
     Active Substance: ELETRIPTAN
     Indication: HEADACHE
     Dosage: UNK
     Route: 048
     Dates: start: 20200730, end: 20200730

REACTIONS (3)
  - Adverse drug reaction [Unknown]
  - Chest discomfort [Recovering/Resolving]
  - Odynophagia [Unknown]

NARRATIVE: CASE EVENT DATE: 20200730
